FAERS Safety Report 11244559 (Version 2)
Quarter: 2015Q3

REPORT INFORMATION
  Report Type: Spontaneous
  Country: US (occurrence: US)
  Receive Date: 20150707
  Receipt Date: 20150814
  Transmission Date: 20151125
  Serious: No
  Sender: FDA-Public Use
  Company Number: US-PFIZER INC-2015221262

PATIENT
  Age: 60 Year
  Sex: Female
  Weight: 104 kg

DRUGS (8)
  1. GABAPENTIN. [Suspect]
     Active Substance: GABAPENTIN
     Dosage: 300 MG (HALF A TABLET), 1X/DAY (AT NIGHT)
     Route: 048
  2. MAXID [Concomitant]
     Dosage: 1 DF (ONE TABLET, 75/50 MG), 1X/DAY
     Route: 048
  3. DOXEPIN [Concomitant]
     Active Substance: DOXEPIN
     Dosage: 100 MG (TWO TABLETS OF 50 MG), 1X/DAY (AT NIGHT)
     Route: 048
  4. FERROUS SULFATE [Concomitant]
     Active Substance: FERROUS SULFATE\FERROUS SULFATE, DRIED
     Dosage: 142 MG (ONE TABLET), 1X/DAY
     Route: 048
  5. K-DUR [Concomitant]
     Active Substance: POTASSIUM CHLORIDE
     Dosage: 20 MEQ (ONE TABLET), 1X/DAY
     Route: 048
  6. GABAPENTIN. [Suspect]
     Active Substance: GABAPENTIN
     Dosage: 600 MG, TWO TO THREE TIMES A DAY)
     Route: 048
  7. GABAPENTIN. [Suspect]
     Active Substance: GABAPENTIN
     Dosage: 600 MG, 1X/DAY (IN THE MORNING)
     Route: 048
  8. ATENOLOL. [Concomitant]
     Active Substance: ATENOLOL
     Dosage: 50 MG, 1X/DAY (ONE TABLET)
     Route: 048

REACTIONS (8)
  - Nail disorder [Unknown]
  - Vomiting [Unknown]
  - Drug intolerance [Unknown]
  - Aggression [Unknown]
  - Limb injury [Unknown]
  - Nightmare [Unknown]
  - Crying [Unknown]
  - Nausea [Unknown]
